FAERS Safety Report 7384373-6 (Version None)
Quarter: 2011Q1

REPORT INFORMATION
  Report Type: 
  Country: None (occurrence: None)
  Receive Date: 20110330
  Receipt Date: 20101018
  Transmission Date: 20110831
  Serious: Yes (Hospitalization, Other)
  Sender: FDA-Public Use
  Company Number: US-BAYER-201035774NA

PATIENT
  Sex: Female
  Weight: 86.168 kg

DRUGS (6)
  1. YASMIN [Suspect]
     Indication: ACNE
     Dosage: UNK
     Dates: start: 20060101, end: 20080101
  2. IMITREX [Concomitant]
  3. OCELLA [Suspect]
     Indication: ACNE
     Dosage: UNK
     Dates: start: 20060101, end: 20080101
  4. ORAL CONTRACEPTIVE NOS [Concomitant]
     Dosage: UNK
     Dates: start: 20010801, end: 20060801
  5. YASMIN [Suspect]
     Indication: CONTRACEPTION
  6. OCELLA [Suspect]
     Indication: CONTRACEPTION

REACTIONS (7)
  - HEARING IMPAIRED [None]
  - MASTOIDITIS [None]
  - INTRACRANIAL VENOUS SINUS THROMBOSIS [None]
  - HEADACHE [None]
  - PHOTOPHOBIA [None]
  - BALANCE DISORDER [None]
  - CHRONIC SINUSITIS [None]
